FAERS Safety Report 6260462-4 (Version None)
Quarter: 2009Q3

REPORT INFORMATION
  Report Type: 
  Country: None (occurrence: None)
  Receive Date: 20090708
  Receipt Date: 20090703
  Transmission Date: 20100115
  Serious: Yes (Life-Threatening)
  Sender: FDA-Public Use
  Company Number: JP-JNJFOC-20090701556

PATIENT
  Sex: Female

DRUGS (3)
  1. RISPERIDONE [Suspect]
     Indication: DRUG EXPOSURE VIA BREAST MILK
  2. SOLANAX [Concomitant]
     Route: 064
  3. AKINETON [Concomitant]
     Route: 064

REACTIONS (3)
  - BREAST FEEDING [None]
  - CARDIO-RESPIRATORY ARREST [None]
  - HAEMORRHAGE INTRACRANIAL [None]
